FAERS Safety Report 7648811-3 (Version None)
Quarter: 2011Q3

REPORT INFORMATION
  Report Type: 
  Country: None (occurrence: None)
  Receive Date: 20110801
  Receipt Date: 20110728
  Transmission Date: 20111222
  Serious: No
  Sender: FDA-Public Use
  Company Number: US-PFIZER INC-2011172486

PATIENT
  Sex: Female
  Weight: 57.596 kg

DRUGS (2)
  1. METOPROLOL [Concomitant]
     Indication: HYPERTENSION
     Dosage: UNK
  2. LIPITOR [Suspect]
     Indication: BLOOD CHOLESTEROL INCREASED
     Dosage: 20 MG, 1X/DAY
     Route: 048
     Dates: start: 20110301, end: 20110701

REACTIONS (2)
  - BURNING SENSATION [None]
  - WEIGHT DECREASED [None]
